FAERS Safety Report 8258110-7 (Version None)
Quarter: 2012Q2

REPORT INFORMATION
  Report Type: 
  Country: None (occurrence: None)
  Receive Date: 20120404
  Receipt Date: 20120323
  Transmission Date: 20120825
  Serious: No
  Sender: FDA-Public Use
  Company Number: US-JNJFOC-20120207220

PATIENT
  Sex: Female

DRUGS (7)
  1. INVEGA SUSTENNA [Suspect]
     Indication: SCHIZOPHRENIA
     Route: 030
     Dates: start: 20110601
  2. WELLBUTRIN XL [Concomitant]
     Indication: ANTIDEPRESSANT THERAPY
     Route: 065
     Dates: start: 20110301
  3. INVEGA SUSTENNA [Suspect]
     Route: 030
     Dates: start: 20110301, end: 20110601
  4. RISPERDAL [Concomitant]
     Route: 048
  5. LEXAPRO [Concomitant]
     Indication: ANXIETY DISORDER
     Route: 065
     Dates: start: 20110301
  6. TOPAMAX [Concomitant]
     Indication: APPETITE DISORDER
     Route: 065
     Dates: start: 20120101
  7. LEXAPRO [Concomitant]
     Indication: DEPRESSION
     Route: 065
     Dates: start: 20110301

REACTIONS (3)
  - NODULE [None]
  - INJECTION SITE MASS [None]
  - INCORRECT DOSE ADMINISTERED [None]
